FAERS Safety Report 6347397-3 (Version None)
Quarter: 2009Q3

REPORT INFORMATION
  Report Type: 
  Country: None (occurrence: None)
  Receive Date: 20090910
  Receipt Date: 20090901
  Transmission Date: 20100115
  Serious: Yes (Other)
  Sender: FDA-Public Use
  Company Number: BE-ASTRAZENECA-2009SE11051

PATIENT
  Sex: Female

DRUGS (1)
  1. SCANDICAINE [Suspect]
     Route: 065

REACTIONS (4)
  - CAUDA EQUINA SYNDROME [None]
  - DIPLEGIA [None]
  - INCONTINENCE [None]
  - TACHYCARDIA [None]
